FAERS Safety Report 8229815-9 (Version None)
Quarter: 2012Q1

REPORT INFORMATION
  Report Type: 
  Country: None (occurrence: None)
  Receive Date: 20120322
  Receipt Date: 20120309
  Transmission Date: 20120608
  Serious: Yes (Hospitalization)
  Sender: FDA-Public Use
  Company Number: BE-MYLANLABS-2012S1005615

PATIENT
  Age: 70 Year
  Sex: Female

DRUGS (1)
  1. DILTIAZEM HCL [Suspect]
     Indication: POISONING
     Route: 065

REACTIONS (6)
  - ANURIA [None]
  - LACTIC ACIDOSIS [None]
  - SHOCK [None]
  - POISONING [None]
  - HYPOXIA [None]
  - OVERDOSE [None]
